FAERS Safety Report 6673060-5 (Version None)
Quarter: 2010Q2

REPORT INFORMATION
  Report Type: 
  Country: None (occurrence: None)
  Receive Date: 20100408
  Receipt Date: 20100401
  Transmission Date: 20101027
  Serious: Yes (Hospitalization)
  Sender: FDA-Public Use
  Company Number: PHHY2010FR14646

PATIENT
  Sex: Female

DRUGS (8)
  1. FEMARA [Suspect]
     Dosage: 7.5 MG DAILY
     Route: 048
     Dates: start: 20100214, end: 20100215
  2. AVASTIN [Suspect]
     Dosage: 25 MG/ML, UNK
     Route: 042
     Dates: start: 20090915, end: 20100120
  3. TAXOL [Suspect]
     Dosage: UNK
     Route: 042
     Dates: start: 20090901, end: 20091214
  4. RAMIPRIL [Concomitant]
  5. LASIX [Concomitant]
  6. OMEPRAZOLE [Concomitant]
  7. IBUPROFEN TABLETS [Concomitant]
  8. PARACETAMOL [Concomitant]

REACTIONS (7)
  - ARRHYTHMIA [None]
  - ATRIAL FIBRILLATION [None]
  - CARDIOMYOPATHY [None]
  - DYSPNOEA [None]
  - ELECTROCARDIOGRAM QT PROLONGED [None]
  - QRS AXIS ABNORMAL [None]
  - TACHYCARDIA [None]
